FAERS Safety Report 7939212-9 (Version None)
Quarter: 2011Q4

REPORT INFORMATION
  Report Type: 
  Country: None (occurrence: None)
  Receive Date: 20111124
  Receipt Date: 20111114
  Transmission Date: 20120403
  Serious: Yes (Hospitalization)
  Sender: FDA-Public Use
  Company Number: DE-ROCHE-729631

PATIENT
  Sex: Female

DRUGS (6)
  1. LAPATINIB [Suspect]
     Indication: BREAST CANCER
     Dosage: FREQUENCY : PER DAY
     Route: 048
     Dates: start: 20100823, end: 20100921
  2. LAPATINIB [Suspect]
     Dosage: REDUCED DOSE, FREQUENCY: PER DAY
     Route: 048
  3. PACLITAXEL [Suspect]
     Indication: BREAST CANCER
     Route: 042
     Dates: start: 20100419, end: 20100705
  4. HERCEPTIN [Suspect]
     Indication: BREAST CANCER
     Dosage: LOADING DOSE
     Route: 042
  5. LAPATINIB [Suspect]
     Dosage: FREQUENCY: PER DAY
     Route: 048
     Dates: start: 20100923, end: 20100928
  6. HERCEPTIN [Suspect]
     Dosage: MAINTENANCE DOSE
     Route: 042

REACTIONS (1)
  - DIZZINESS [None]
